FAERS Safety Report 8444268-3 (Version None)
Quarter: 2012Q2

REPORT INFORMATION
  Report Type: 
  Country: None (occurrence: None)
  Receive Date: 20120618
  Receipt Date: 20120615
  Transmission Date: 20120825
  Serious: No
  Sender: FDA-Public Use
  Company Number: US-PFIZER INC-2012145021

PATIENT
  Sex: Female

DRUGS (6)
  1. COUMADIN [Concomitant]
     Dosage: UNK
  2. CLARINEX [Concomitant]
     Indication: HOUSE DUST ALLERGY
  3. EFFEXOR [Concomitant]
     Dosage: UNK
  4. CLARINEX [Concomitant]
     Indication: HYPERSENSITIVITY
  5. CLARINEX [Concomitant]
     Indication: SEASONAL ALLERGY
     Dosage: UNK
  6. CELEBREX [Suspect]
     Indication: OSTEOARTHRITIS
     Dosage: 200 MG, 1X/DAY
     Route: 048
     Dates: start: 20120608

REACTIONS (1)
  - NAUSEA [None]
